FAERS Safety Report 15837394 (Version 1)
Quarter: 2019Q1

REPORT INFORMATION
  Report Type: Spontaneous
  Country: US (occurrence: US)
  Receive Date: 20190117
  Receipt Date: 20190117
  Transmission Date: 20190417
  Serious: Yes (Life-Threatening, Other)
  Sender: FDA-Public Use
  Company Number: US-TEVA-2019-US-999608

PATIENT
  Sex: Male

DRUGS (1)
  1. AMIODARONE [Suspect]
     Active Substance: AMIODARONE
     Indication: ATRIAL FIBRILLATION
     Route: 065

REACTIONS (14)
  - Blindness [Unknown]
  - Oedema [Unknown]
  - Product use in unapproved indication [Unknown]
  - Asthenia [Unknown]
  - Product prescribing error [Unknown]
  - Amnesia [Unknown]
  - Traumatic lung injury [Unknown]
  - Fatigue [Unknown]
  - Chest pain [Unknown]
  - Vision blurred [Unknown]
  - Dyspnoea [Unknown]
  - Wheezing [Unknown]
  - Dizziness [Unknown]
  - Gait disturbance [Unknown]

NARRATIVE: CASE EVENT DATE: 201601
